FAERS Safety Report 20093587 (Version 2)
Quarter: 2021Q4

REPORT INFORMATION
  Report Type: Spontaneous
  Country: BG (occurrence: None)
  Receive Date: 20211121
  Receipt Date: 20211205
  Transmission Date: 20220303
  Serious: Yes (Death)
  Sender: FDA-Public Use
  Company Number: BG-ROCHE-2961085

PATIENT
  Age: 72 Year
  Sex: Male
  Weight: 65 kg

DRUGS (5)
  1. TOCILIZUMAB [Suspect]
     Active Substance: TOCILIZUMAB
     Indication: COVID-19
     Route: 042
     Dates: start: 20211105, end: 20211105
  2. DEXAMETHASONE [Concomitant]
     Active Substance: DEXAMETHASONE
     Indication: COVID-19 pneumonia
     Route: 065
     Dates: end: 20211117
  3. NADROPARIN CALCIUM [Concomitant]
     Active Substance: NADROPARIN CALCIUM
     Indication: COVID-19 pneumonia
     Dosage: 2 AMPULES
     Route: 042
  4. HEPARIN [Concomitant]
     Active Substance: HEPARIN SODIUM
     Indication: COVID-19 pneumonia
     Route: 042
     Dates: end: 20211115
  5. PROPAFENONE [Concomitant]
     Active Substance: PROPAFENONE
     Indication: Atrial fibrillation
     Route: 048
     Dates: start: 2020, end: 20201117

REACTIONS (5)
  - Respiratory failure [Fatal]
  - Oxygen saturation decreased [Fatal]
  - Blood pressure decreased [Fatal]
  - Pulse pressure decreased [Fatal]
  - Off label use [Fatal]

NARRATIVE: CASE EVENT DATE: 20211105
